FAERS Safety Report 5288761-3 (Version None)
Quarter: 2007Q2

REPORT INFORMATION
  Report Type: 
  Country: None (occurrence: None)
  Receive Date: 20070405
  Receipt Date: 20070327
  Transmission Date: 20071010
  Serious: Yes (Hospitalization)
  Sender: FDA-Public Use
  Company Number: GB-SANOFI-SYNTHELABO-F01200700136

PATIENT
  Sex: Male
  Weight: 89 kg

DRUGS (6)
  1. PARACETAMOL [Concomitant]
     Route: 048
  2. CHLORPROMAZINE [Concomitant]
     Route: 048
     Dates: start: 20070105, end: 20070109
  3. FLUCONAZOLE [Concomitant]
     Route: 048
     Dates: start: 20070103, end: 20070109
  4. CETUXIMAB [Suspect]
     Dosage: 400 MG/M2 LOADING DOSE FOLLOWED BY A WEEKLY INFUSION OF 250 MG/M2
     Route: 041
     Dates: start: 20061218, end: 20061218
  5. FLUOROURACIL [Suspect]
     Dosage: 850 MG BOLUS FOLLOWED BY A 46 HOUR INFUSION OF 5200 MG
     Route: 041
     Dates: start: 20061218, end: 20061219
  6. OXALIPLATIN [Suspect]
     Indication: COLORECTAL CANCER METASTATIC
     Route: 041
     Dates: start: 20061218, end: 20061218

REACTIONS (13)
  - ANAEMIA [None]
  - ANOREXIA [None]
  - CACHEXIA [None]
  - DISEASE PROGRESSION [None]
  - ESCHERICHIA INFECTION [None]
  - HEPATIC NECROSIS [None]
  - HICCUPS [None]
  - JAUNDICE [None]
  - LETHARGY [None]
  - MUCOSAL INFLAMMATION [None]
  - NAUSEA [None]
  - NO THERAPEUTIC RESPONSE [None]
  - WEIGHT DECREASED [None]
